FAERS Safety Report 8605684-X (Version None)
Quarter: 2012Q3

REPORT INFORMATION
  Report Type: 
  Country: None (occurrence: None)
  Receive Date: 20120820
  Receipt Date: 20120726
  Transmission Date: 20120928
  Serious: Yes (Other)
  Sender: FDA-Public Use
  Company Number: ES-ROCHE-1051345

PATIENT
  Age: 65 Year
  Sex: Female

DRUGS (5)
  1. PEGASYS [Suspect]
     Indication: HEPATITIS C
     Route: 058
     Dates: start: 20120201, end: 20120307
  2. COPEGUS [Suspect]
     Indication: HEPATITIS C
     Route: 048
     Dates: start: 20120201, end: 20120302
  3. COPEGUS [Suspect]
     Route: 048
     Dates: start: 20120302, end: 20120307
  4. BOCEPREVIR [Suspect]
     Indication: HEPATITIS C
     Route: 048
     Dates: start: 20120302, end: 20120307
  5. FUROSEMIDE [Concomitant]
     Route: 048
     Dates: start: 20120307, end: 20120411

REACTIONS (3)
  - ANAEMIA [None]
  - HYPONATRAEMIA [None]
  - OEDEMA [None]
